FAERS Safety Report 6152875-6 (Version None)
Quarter: 2009Q2

REPORT INFORMATION
  Report Type: 
  Country: None (occurrence: None)
  Receive Date: 20090413
  Receipt Date: 20090407
  Transmission Date: 20091009
  Serious: Yes (Life-Threatening, Other)
  Sender: FDA-Public Use
  Company Number: PHHY2009FR13138

PATIENT
  Sex: Female

DRUGS (9)
  1. FORADIL [Suspect]
  2. MEDIATOR [Suspect]
     Indication: DIABETES MELLITUS
     Dosage: 3 TABLETS/DAY
     Dates: start: 20030601, end: 20060101
  3. TRIATEC [Suspect]
     Indication: CARDIAC FAILURE
  4. LASIX [Suspect]
  5. PAROXETINE HCL [Suspect]
     Indication: DEPRESSION
     Dosage: UNK
     Dates: start: 20050101, end: 20070101
  6. XANAX [Suspect]
  7. DI-ANTALVIC [Suspect]
  8. DIFFU K [Suspect]
  9. LEVOTHYROXINE SODIUM [Suspect]

REACTIONS (11)
  - BRONCHITIS [None]
  - CARDIAC MURMUR [None]
  - DEPRESSION [None]
  - DIABETES MELLITUS [None]
  - DYSPNOEA EXERTIONAL [None]
  - EJECTION FRACTION DECREASED [None]
  - MITRAL VALVE INCOMPETENCE [None]
  - PULMONARY ARTERIAL HYPERTENSION [None]
  - ROTATOR CUFF SYNDROME [None]
  - TRICUSPID VALVE INCOMPETENCE [None]
  - VENTRICULAR HYPOKINESIA [None]
